FAERS Safety Report 23493369 (Version 1)
Quarter: 2024Q1

REPORT INFORMATION
  Report Type: Spontaneous
  Country: FR (occurrence: FR)
  Receive Date: 20240207
  Receipt Date: 20240207
  Transmission Date: 20240409
  Serious: Yes (Other)
  Sender: FDA-Public Use
  Company Number: None

PATIENT
  Age: 93 Year
  Sex: Female

DRUGS (10)
  1. MIRTAZAPINE [Suspect]
     Active Substance: MIRTAZAPINE
     Indication: Depression
     Dosage: 15 MILLIGRAM, QD, 0-0-1
     Route: 048
     Dates: start: 20230208, end: 20230213
  2. BISOPROLOL [Concomitant]
     Active Substance: BISOPROLOL\BISOPROLOL FUMARATE
     Dosage: 10 MILLIGRAM, QD, 1-0-0
     Route: 048
  3. ZOPICLONE [Concomitant]
     Active Substance: ZOPICLONE
     Dosage: 7.5 MILLIGRAM PER GRAM, QD (0-0-1)
     Route: 048
  4. PANTOPRAZOLE [Concomitant]
     Active Substance: PANTOPRAZOLE
     Dosage: 80 MILLIGRAM PER GRAM, QD (1-0-1)
     Route: 048
  5. DUPHALAC [Concomitant]
     Active Substance: LACTULOSE
     Dosage: 2 DOSAGE FORM, QD,1-1-0, ORAL POWDER OR FOR RECTAL SOLUTION IN SACHET
     Route: 048
  6. FUROSEMIDE [Concomitant]
     Active Substance: FUROSEMIDE
     Dosage: 40 MILLIGRAM, QD, 1-0-0
     Route: 048
  7. ALLOPURINOL [Concomitant]
     Active Substance: ALLOPURINOL
     Dosage: 100 MILLIGRAM, QD, 1-0-0
     Route: 048
  8. ALDACTONE [Concomitant]
     Active Substance: SPIRONOLACTONE
     Dosage: 50 MILLIGRAM, QD,2-0-0, SCORED FILM-COATED TABLET
     Route: 048
  9. NITROGLYCERIN [Concomitant]
     Active Substance: NITROGLYCERIN
     Dosage: 1 DOSAGE FORM, QD, 5 MG/24 HOURS
     Route: 062
  10. RIFAXIMIN [Concomitant]
     Active Substance: RIFAXIMIN
     Dosage: 1100 MILLIGRAM PER GRAM, QD, 1-0-1
     Route: 048

REACTIONS (2)
  - Hallucination [Recovered/Resolved]
  - Nightmare [Recovered/Resolved]
